FAERS Safety Report 7700381-7 (Version None)
Quarter: 2011Q3

REPORT INFORMATION
  Report Type: 
  Country: None (occurrence: None)
  Receive Date: 20110822
  Receipt Date: 20110811
  Transmission Date: 20111222
  Serious: Yes (Hospitalization)
  Sender: FDA-Public Use
  Company Number: AR-SANOFI-AVENTIS-2011SA043709

PATIENT
  Age: 80 Year
  Sex: Female
  Weight: 60 kg

DRUGS (5)
  1. WARFARIN SODIUM [Concomitant]
  2. METFORMIN HYDROCHLORIDE [Concomitant]
     Dates: start: 20090910
  3. DRONEDARONE HCL [Suspect]
     Indication: ATRIAL FIBRILLATION
     Route: 048
     Dates: start: 20110119
  4. ENALAPRIL MALEATE [Concomitant]
  5. DIAZEPAM [Concomitant]
     Dosage: DOSE:1 UNIT(S)
     Route: 065
     Dates: start: 20090201

REACTIONS (2)
  - RECTAL HAEMORRHAGE [None]
  - ISCHAEMIC STROKE [None]
